FAERS Safety Report 24691164 (Version 2)
Quarter: 2025Q2

REPORT INFORMATION
  Report Type: Report from Study
  Country: US (occurrence: US)
  Receive Date: 20241203
  Receipt Date: 20250401
  Transmission Date: 20250716
  Serious: Yes (Other)
  Sender: DAIICHI
  Company Number: US-DSJP-DSU-2024-114556

PATIENT
  Sex: Female

DRUGS (5)
  1. ENHERTU [Suspect]
     Active Substance: FAM-TRASTUZUMAB DERUXTECAN-NXKI
     Indication: Product used for unknown indication
     Dosage: 260 MG, ONCE EVERY 3 WK
     Route: 042
     Dates: start: 20240214, end: 20240214
  2. ENHERTU [Suspect]
     Active Substance: FAM-TRASTUZUMAB DERUXTECAN-NXKI
     Dosage: 260 MG, ONCE EVERY 3 WK
     Route: 042
     Dates: start: 20240221
  3. ENHERTU [Suspect]
     Active Substance: FAM-TRASTUZUMAB DERUXTECAN-NXKI
     Dosage: 350 MG, ONCE EVERY 3 WK
     Route: 042
  4. ENHERTU [Suspect]
     Active Substance: FAM-TRASTUZUMAB DERUXTECAN-NXKI
     Dosage: 260 MG, ONCE EVERY 3 WK
     Route: 042
     Dates: start: 20240328
  5. ENHERTU [Suspect]
     Active Substance: FAM-TRASTUZUMAB DERUXTECAN-NXKI
     Dosage: 260 MG, ONCE EVERY 3 WK
     Route: 042
     Dates: start: 20240214, end: 20240924

REACTIONS (4)
  - Cytopenia [Unknown]
  - Haemoglobin decreased [Unknown]
  - Treatment delayed [Not Recovered/Not Resolved]
  - Therapy cessation [Not Recovered/Not Resolved]

NARRATIVE: CASE EVENT DATE: 20240101
